FAERS Safety Report 13064857 (Version 1)
Quarter: 2016Q4

REPORT INFORMATION
  Report Type: Spontaneous
  Country: US (occurrence: US)
  Receive Date: 20161227
  Receipt Date: 20161227
  Transmission Date: 20170207
  Serious: No
  Sender: FDA-Public Use
  Company Number: None

PATIENT
  Sex: Female

DRUGS (2)
  1. HUMIRA [Suspect]
     Active Substance: ADALIMUMAB
     Indication: GASTROINTESTINAL INFLAMMATION
     Dosage: 40MG EVERY 14 DAYS SC
     Route: 058
     Dates: start: 20151124
  2. HUMIRA [Suspect]
     Active Substance: ADALIMUMAB
     Indication: COLITIS
     Dosage: 40MG EVERY 14 DAYS SC
     Route: 058
     Dates: start: 20151124

REACTIONS (2)
  - Hypoaesthesia [None]
  - Myalgia [None]
